FAERS Safety Report 9083093 (Version 1)
Quarter: 2013Q1

REPORT INFORMATION
  Report Type: Report from Study
  Country: US (occurrence: US)
  Receive Date: 20130130
  Receipt Date: 20130130
  Transmission Date: 20140127
  Serious: No
  Sender: FDA-Public Use
  Company Number: US-ABBOTT-12P-163-0954943-00

PATIENT
  Age: 56 Year
  Sex: Male

DRUGS (12)
  1. HUMIRA 40 MG/0.8 ML PEN [Suspect]
     Indication: CROHN^S DISEASE
     Dates: start: 20120606
  2. ZOLOFT [Concomitant]
     Indication: DEPRESSION
     Dosage: 50MG DAILY
  3. BYSTOLIC [Concomitant]
     Indication: HYPERTENSION
     Dosage: 5MG DAILY
  4. IMODIUM [Concomitant]
     Indication: DIARRHOEA
  5. CELEBREX [Concomitant]
     Indication: ARTHRITIS
     Dosage: 20MG DAILY
  6. VICODIN [Concomitant]
     Indication: PAIN
  7. OTC PRILOSEC [Concomitant]
     Indication: PRODUCT USED FOR UNKNOWN INDICATION
     Dosage: DAILY
  8. LOVAZA [Concomitant]
     Indication: PRODUCT USED FOR UNKNOWN INDICATION
     Dosage: 1GM DAILY
  9. VITAMIN B12 [Concomitant]
     Indication: VITAMIN SUPPLEMENTATION
     Dosage: 5000MCG SL DAILY
  10. SUPER B WITH FOLIC ACID [Concomitant]
     Indication: VITAMIN SUPPLEMENTATION
     Dosage: DAILY
  11. MULTIVITAMIN MALES }50 [Concomitant]
     Indication: VITAMIN SUPPLEMENTATION
     Dosage: DAILY
  12. D3 [Concomitant]
     Indication: VITAMIN SUPPLEMENTATION
     Dosage: DAILY

REACTIONS (2)
  - Injection site swelling [Recovered/Resolved]
  - Injection site pruritus [Recovered/Resolved]
